FAERS Safety Report 12079320 (Version 1)
Quarter: 2016Q1

REPORT INFORMATION
  Report Type: Spontaneous
  Country: US (occurrence: None)
  Receive Date: 20160212
  Receipt Date: 20160212
  Transmission Date: 20160526
  Serious: Yes (Other)
  Sender: FDA-Public Use
  Company Number: None

PATIENT
  Age: 23 Year
  Sex: Female
  Weight: 49.9 kg

DRUGS (1)
  1. TUBERSOL [Suspect]
     Active Substance: TUBERCULIN PURIFIED PROTEIN DERIVATIVE
     Indication: TUBERCULIN TEST
     Dosage: 0.1 ML INTRADERMAL ONCE ANNUALLY TRANSDERMAL
     Route: 062
     Dates: start: 20151201, end: 20160122

REACTIONS (2)
  - Product quality issue [None]
  - Tuberculin test positive [None]

NARRATIVE: CASE EVENT DATE: 20151203
